FAERS Safety Report 9227768 (Version 2)
Quarter: 2013Q2

REPORT INFORMATION
  Report Type: Spontaneous
  Country: US (occurrence: US)
  Receive Date: 20130412
  Receipt Date: 20130412
  Transmission Date: 20140414
  Serious: No
  Sender: FDA-Public Use
  Company Number: US-MYLANLABS-2012S1022615

PATIENT
  Sex: Female

DRUGS (1)
  1. DILTIAZEM HCL EXTENDED RELEASE CAPSULES, USP [Suspect]
     Indication: BLOOD PRESSURE INCREASED
     Route: 048
     Dates: start: 201210

REACTIONS (3)
  - Drug ineffective [Not Recovered/Not Resolved]
  - Blood pressure increased [Not Recovered/Not Resolved]
  - Medication residue present [Not Recovered/Not Resolved]
